FAERS Safety Report 5671936-9 (Version None)
Quarter: 2008Q1

REPORT INFORMATION
  Report Type: 
  Country: None (occurrence: None)
  Receive Date: 20080317
  Receipt Date: 20080317
  Transmission Date: 20080703
  Serious: Yes (Other)
  Sender: FDA-Public Use
  Company Number: None

PATIENT
  Age: 50 Year
  Sex: Female
  Weight: 56.6996 kg

DRUGS (5)
  1. ACETAMINOPHEN [Suspect]
     Indication: ARTHRITIS
     Dosage: 975 MG, ONE TIME, ORAL
     Route: 048
     Dates: start: 20080122
  2. THEOPHYLLINE [Concomitant]
  3. ALBUTEROL [Concomitant]
  4. MIRTAZAPINE [Concomitant]
  5. CLONAZAPINE [Concomitant]

REACTIONS (5)
  - HEADACHE [None]
  - HYPOAESTHESIA [None]
  - MUSCLE SPASMS [None]
  - PAIN [None]
  - PARAESTHESIA [None]
